FAERS Safety Report 10183969 (Version 2)
Quarter: 2014Q2

REPORT INFORMATION
  Report Type: Spontaneous
  Country: US (occurrence: US)
  Receive Date: 20140520
  Receipt Date: 20140520
  Transmission Date: 20141212
  Serious: No
  Sender: FDA-Public Use
  Company Number: US-MYLANLABS-2014S1008826

PATIENT
  Age: 46 Year
  Sex: Female

DRUGS (1)
  1. BUDESONIDE CAPSULES [Suspect]
     Route: 048
     Dates: start: 20140401, end: 20140411

REACTIONS (1)
  - Drug ineffective [Not Recovered/Not Resolved]
